FAERS Safety Report 22776173 (Version 2)
Quarter: 2023Q4

REPORT INFORMATION
  Report Type: Spontaneous
  Country: US (occurrence: US)
  Receive Date: 20230802
  Receipt Date: 20231107
  Transmission Date: 20240110
  Serious: No
  Sender: FDA-Public Use
  Company Number: US-SA-SAC20230731001461

PATIENT
  Sex: Female

DRUGS (1)
  1. DUPIXENT [Suspect]
     Active Substance: DUPILUMAB
     Dosage: 300 MG, QOW
     Route: 058

REACTIONS (8)
  - Injection site induration [Recovered/Resolved]
  - Injection site warmth [Recovered/Resolved]
  - Dry skin [Unknown]
  - Ocular hyperaemia [Unknown]
  - Skin exfoliation [Unknown]
  - Pruritus [Unknown]
  - Injection site erythema [Recovered/Resolved]
  - Eye pruritus [Unknown]
